FAERS Safety Report 21828916 (Version 1)
Quarter: 2023Q1

REPORT INFORMATION
  Report Type: Spontaneous
  Country: FR (occurrence: FR)
  Receive Date: 20230106
  Receipt Date: 20230106
  Transmission Date: 20230418
  Serious: Yes (Hospitalization, Other)
  Sender: FDA-Public Use
  Company Number: FR-AFSSAPS-AVCN20220997

PATIENT
  Age: 37 Year
  Sex: Male

DRUGS (6)
  1. ZOLPIDEM [Suspect]
     Active Substance: ZOLPIDEM TARTRATE
     Indication: Product used for unknown indication
     Dosage: 20 MILLIGRAM/GRAM
     Route: 048
  2. ZOLPIDEM [Suspect]
     Active Substance: ZOLPIDEM TARTRATE
     Dosage: UNK, 2 ?PISODES D^INJECTION
     Route: 042
     Dates: start: 20210820, end: 20210821
  3. CANNABIS SATIVA SUBSP. INDICA TOP [Suspect]
     Active Substance: CANNABIS SATIVA SUBSP. INDICA TOP
     Indication: Product used for unknown indication
     Dosage: UNK
  4. ALCOHOL [Suspect]
     Active Substance: ALCOHOL
     Indication: Product used for unknown indication
     Dosage: UNK, 5 BI?RES ? 8?/J
     Route: 048
     Dates: start: 2010
  5. HEROIN [Suspect]
     Active Substance: DIAMORPHINE
     Indication: Product used for unknown indication
     Dosage: UNK
     Route: 045
     Dates: start: 1998
  6. HEROIN [Suspect]
     Active Substance: DIAMORPHINE
     Dosage: 2-3 INJECTIONS/J
     Route: 042
     Dates: start: 2020

REACTIONS (10)
  - Deep vein thrombosis [Recovering/Resolving]
  - Lung abscess [Recovering/Resolving]
  - Pulmonary infarction [Recovering/Resolving]
  - Staphylococcal bacteraemia [Recovered/Resolved]
  - Abscess [Recovering/Resolving]
  - Injection site mass [Recovering/Resolving]
  - Hepatitis C virus test positive [Not Recovered/Not Resolved]
  - Blood culture positive [Recovered/Resolved]
  - Drug abuse [Not Recovered/Not Resolved]
  - Off label use [Recovered/Resolved with Sequelae]

NARRATIVE: CASE EVENT DATE: 20210820
